FAERS Safety Report 11415768 (Version 4)
Quarter: 2018Q4

REPORT INFORMATION
  Report Type: Spontaneous
  Country: US (occurrence: US)
  Receive Date: 20150825
  Receipt Date: 20181119
  Transmission Date: 20190204
  Serious: No
  Sender: FDA-Public Use
  Company Number: US-PFIZER INC-2015270287

PATIENT
  Age: 67 Year
  Sex: Female

DRUGS (1)
  1. ATORVASTATIN CALCIUM. [Suspect]
     Active Substance: ATORVASTATIN CALCIUM
     Dosage: UNK

REACTIONS (12)
  - Epistaxis [Unknown]
  - Pruritus generalised [Unknown]
  - Generalised erythema [Unknown]
  - Drug hypersensitivity [Unknown]
  - Eye pruritus [Unknown]
  - Urticaria [Not Recovered/Not Resolved]
  - Skin exfoliation [Unknown]
  - Eyelids pruritus [Unknown]
  - Pruritus [Unknown]
  - Irritability [Not Recovered/Not Resolved]
  - Fatigue [Unknown]
  - Insomnia [Not Recovered/Not Resolved]
